FAERS Safety Report 10939746 (Version 1)
Quarter: 2015Q1

REPORT INFORMATION
  Report Type: Spontaneous
  Country: US (occurrence: None)
  Receive Date: 20150212
  Receipt Date: 20150212
  Transmission Date: 20150721
  Serious: No
  Sender: FDA-Public Use
  Company Number: TPA2011A04771

PATIENT
  Age: 65 Year
  Sex: Male
  Weight: 88.91 kg

DRUGS (3)
  1. ULORIC [Suspect]
     Active Substance: FEBUXOSTAT
     Indication: GOUT
     Route: 048
     Dates: start: 20110722, end: 20110801
  2. CELEBREX [Suspect]
     Active Substance: CELECOXIB
     Indication: GOUT
     Route: 048
     Dates: start: 20110722, end: 20110808
  3. CELEBREX [Suspect]
     Active Substance: CELECOXIB
     Indication: PROPHYLAXIS
     Route: 048
     Dates: start: 20110722, end: 20110808

REACTIONS (2)
  - Rash [None]
  - Pruritus [None]

NARRATIVE: CASE EVENT DATE: 2011
